FAERS Safety Report 8124195-1 (Version None)
Quarter: 2012Q1

REPORT INFORMATION
  Report Type: 
  Country: None (occurrence: None)
  Receive Date: 20120209
  Receipt Date: 20120201
  Transmission Date: 20120608
  Serious: Yes (Other)
  Sender: FDA-Public Use
  Company Number: US-US-EMD SERONO, INC.-7016376

PATIENT
  Sex: Female
  Weight: 99 kg

DRUGS (21)
  1. HUMALOG [Concomitant]
     Indication: DIABETES MELLITUS
  2. LANTUS [Concomitant]
     Indication: DIABETES MELLITUS
     Route: 058
  3. LEVOTHYROXINE SODIUM [Concomitant]
     Route: 048
  4. OMEPRAZOLE [Concomitant]
     Route: 048
  5. REBIF [Suspect]
     Indication: MULTIPLE SCLEROSIS
     Route: 058
     Dates: start: 20100327
  6. PROGESTERONE [Concomitant]
     Route: 048
  7. NOVOLIN R [Concomitant]
     Route: 058
  8. SOMA [Concomitant]
  9. HYDROCODONE BITARTRATE [Concomitant]
     Indication: PAIN
     Route: 048
  10. ATENOLOL AND CHLORTHALIDONE [Concomitant]
  11. IPRATROPIUM BROMIDE [Concomitant]
     Route: 045
  12. UNSPECIFIED MEDICATION [Concomitant]
     Indication: THYROID DISORDER
  13. NITROGLYCERIN [Concomitant]
     Route: 060
  14. ALBUTEROL INHALER [Concomitant]
  15. NITROGLYCERIN [Concomitant]
  16. BACLOFEN [Concomitant]
  17. CARISOPRODOL [Concomitant]
     Route: 048
  18. VYTORIN [Concomitant]
     Route: 048
  19. ASPIRIN [Concomitant]
     Route: 048
  20. MULTI-VITAMIN [Concomitant]
     Route: 048
  21. VITAMIN D [Concomitant]

REACTIONS (10)
  - BLOOD GLUCOSE INCREASED [None]
  - CONSTIPATION [None]
  - MUSCLE SPASMS [None]
  - INSOMNIA [None]
  - MALAISE [None]
  - ALOPECIA [None]
  - DEPRESSION [None]
  - MULTIPLE SCLEROSIS RELAPSE [None]
  - HYPOKINESIA [None]
  - HEADACHE [None]
